FAERS Safety Report 14872509 (Version 1)
Quarter: 2018Q2

REPORT INFORMATION
  Report Type: Spontaneous
  Country: FR (occurrence: FR)
  Receive Date: 20180510
  Receipt Date: 20180510
  Transmission Date: 20180711
  Serious: Yes (Hospitalization, Disabling)
  Sender: FDA-Public Use
  Company Number: FR-BAXTER-2018BAX013442

PATIENT
  Age: 1 Year

DRUGS (2)
  1. CHLORURE DE SODIUM A 0,9 POUR CENT BAXTER, SOLUTION POUR PERFUSION EN [Suspect]
     Active Substance: SODIUM CHLORIDE
     Indication: PRODUCT USED FOR UNKNOWN INDICATION
     Route: 041
     Dates: start: 20171206
  2. CALCIUM CHLORIDE. [Suspect]
     Active Substance: CALCIUM CHLORIDE
     Indication: PRODUCT USED FOR UNKNOWN INDICATION
     Route: 041
     Dates: start: 20171206

REACTIONS (4)
  - Amputation [Recovered/Resolved with Sequelae]
  - Infusion site ischaemia [Recovered/Resolved with Sequelae]
  - Skin necrosis [Recovered/Resolved with Sequelae]
  - Infusion site extravasation [Recovered/Resolved with Sequelae]

NARRATIVE: CASE EVENT DATE: 20171206
